FAERS Safety Report 4439095-8 (Version None)
Quarter: 2004Q3

REPORT INFORMATION
  Report Type: 
  Country: None (occurrence: None)
  Receive Date: 20040830
  Receipt Date: 20040813
  Transmission Date: 20050211
  Serious: Yes (Congenital Anomaly)
  Sender: FDA-Public Use
  Company Number: S04-SAF-03887-01

PATIENT
  Age: 41 Year
  Sex: Female

DRUGS (2)
  1. CIPRALEX  (ESCITALOPRAM) [Suspect]
     Indication: GENERALISED ANXIETY DISORDER
     Dosage: 5 MG QD PO
     Route: 048
     Dates: start: 20030909, end: 20031222
  2. CIPRALEX  (ESCITALOPRAM) [Suspect]
     Indication: MAJOR DEPRESSION
     Dosage: 5 MG QD PO
     Route: 048
     Dates: start: 20030909, end: 20031222

REACTIONS (4)
  - ABORTION INDUCED [None]
  - DRUG EXPOSURE DURING PREGNANCY [None]
  - TRISOMY 18 [None]
  - UNINTENDED PREGNANCY [None]
